FAERS Safety Report 7989995-7 (Version None)
Quarter: 2011Q4

REPORT INFORMATION
  Report Type: 
  Country: None (occurrence: None)
  Receive Date: 20111219
  Receipt Date: 20110225
  Transmission Date: 20120403
  Serious: No
  Sender: FDA-Public Use
  Company Number: US-ASTRAZENECA-2011SE10689

PATIENT
  Age: 80 Year
  Sex: Female
  Weight: 76.7 kg

DRUGS (6)
  1. METHIMAZOLE [Concomitant]
     Indication: THYROID DISORDER
  2. HYDRALAZINE HCL [Concomitant]
     Indication: BLOOD PRESSURE
  3. CRESTOR [Suspect]
     Route: 048
  4. VERAPAMIL [Concomitant]
  5. HYDROCHLOROTHIAZIDE [Concomitant]
  6. METOPROLOL SUCCINATE [Concomitant]

REACTIONS (1)
  - CATARACT [None]
